FAERS Safety Report 8745714 (Version 2)
Quarter: 2012Q4

REPORT INFORMATION
  Report Type: Report from Study
  Country: CA (occurrence: CA)
  Receive Date: 20120827
  Receipt Date: 20120920
  Transmission Date: 20130627
  Serious: Yes (Other)
  Sender: FDA-Public Use
  Company Number: CA-BRISTOL-MYERS SQUIBB COMPANY-16862864

PATIENT
  Age: 54 Year
  Sex: Female

DRUGS (9)
  1. ORENCIA [Suspect]
     Indication: RHEUMATOID ARTHRITIS
     Dosage: last infusion on 14-Aug-2012,10Sep2012,no of inf:5
2D73510,AL2015
     Route: 042
     Dates: start: 20120613
  2. TEVAPIRIN [Concomitant]
  3. TRIAMTERENE + HCTZ [Concomitant]
  4. ALENDRONATE [Concomitant]
  5. SULFASALAZINE [Concomitant]
  6. LEUCOVORIN [Concomitant]
  7. FENOFIBRATE [Concomitant]
  8. PANTOLOC [Concomitant]
  9. NAPROXEN [Concomitant]

REACTIONS (2)
  - Cholelithiasis [Recovering/Resolving]
  - Polyp [Recovering/Resolving]
